FAERS Safety Report 6450889-X (Version None)
Quarter: 2009Q4

REPORT INFORMATION
  Report Type: 
  Country: None (occurrence: None)
  Receive Date: 20091123
  Receipt Date: 20091110
  Transmission Date: 20100525
  Serious: Yes (Other)
  Sender: FDA-Public Use
  Company Number: NO-PFIZER INC-2009293360

PATIENT
  Age: 76 Year
  Sex: Male

DRUGS (3)
  1. VIAGRA [Suspect]
     Dosage: 1-2 TABLES EACH MONTH
     Route: 048
  2. LIPITOR [Concomitant]
  3. ALBYL-E [Concomitant]
     Dosage: 160 MG, 1X/DAY
     Route: 048

REACTIONS (1)
  - RETINAL VEIN THROMBOSIS [None]
